FAERS Safety Report 12965503 (Version 2)
Quarter: 2016Q4

REPORT INFORMATION
  Report Type: Spontaneous
  Country: US (occurrence: US)
  Receive Date: 20161122
  Receipt Date: 20161228
  Transmission Date: 20170207
  Serious: Yes (Other)
  Sender: FDA-Public Use
  Company Number: US-BAYER-2016-217014

PATIENT
  Age: 47 Year
  Sex: Female

DRUGS (2)
  1. GADAVIST [Suspect]
     Active Substance: GADOBUTROL
     Indication: NUCLEAR MAGNETIC RESONANCE IMAGING BRAIN
     Dosage: 12 ML, ONCE
     Dates: start: 20160115, end: 20160115
  2. GADAVIST [Suspect]
     Active Substance: GADOBUTROL
     Indication: NUCLEAR MAGNETIC RESONANCE IMAGING BRAIN
     Dosage: UNK, ONCE
     Dates: start: 20160115, end: 20160115

REACTIONS (7)
  - Dizziness [Unknown]
  - Blood glucose decreased [Unknown]
  - Claustrophobia [Unknown]
  - Anxiety [Unknown]
  - Nausea [Unknown]
  - Blood glucose increased [Unknown]
  - Amnesia [None]

NARRATIVE: CASE EVENT DATE: 20160115
